FAERS Safety Report 12641873 (Version 2)
Quarter: 2018Q2

REPORT INFORMATION
  Report Type: Report from Study
  Country: JP (occurrence: JP)
  Receive Date: 20160810
  Receipt Date: 20180414
  Transmission Date: 20180711
  Serious: Yes (Hospitalization)
  Sender: FDA-Public Use
  Company Number: JP-DSJP-DSJ-2016-126972

PATIENT

DRUGS (7)
  1. DIART [Concomitant]
     Active Substance: AZOSEMIDE
     Dosage: 30MG/DAY
     Route: 048
  2. AMLODIN [Suspect]
     Active Substance: AMLODIPINE BESYLATE
     Dosage: 10MG/DAY
     Route: 048
     Dates: end: 20160523
  3. PREMINENT [Suspect]
     Active Substance: HYDROCHLOROTHIAZIDE\LOSARTAN POTASSIUM
     Dosage: 1DF/DAY
     Route: 048
     Dates: start: 20160524, end: 20160624
  4. LASIX [Concomitant]
     Active Substance: FUROSEMIDE
     Dosage: 20MG/DAY
     Route: 048
     Dates: start: 20160909
  5. MAINTATE [Concomitant]
     Active Substance: BISOPROLOL FUMARATE
     Indication: ATRIAL FIBRILLATION
     Dosage: 0.625MG/DAY
     Route: 048
     Dates: start: 20160329
  6. LIPITOR [Concomitant]
     Active Substance: ATORVASTATIN CALCIUM
     Dosage: 10MG/DAY
     Route: 048
  7. EDOXABAN [Suspect]
     Active Substance: EDOXABAN TOSYLATE
     Indication: ATRIAL FIBRILLATION
     Dosage: 30 MG, QD
     Route: 048
     Dates: start: 20160329

REACTIONS (3)
  - Hepatic function abnormal [Recovered/Resolved]
  - Oedema peripheral [Recovered/Resolved]
  - Cardiac failure congestive [Recovering/Resolving]

NARRATIVE: CASE EVENT DATE: 20160509
